FAERS Safety Report 7076828-9 (Version None)
Quarter: 2010Q4

REPORT INFORMATION
  Report Type: 
  Country: None (occurrence: None)
  Receive Date: 20101101
  Receipt Date: 20101026
  Transmission Date: 20110411
  Serious: Yes (Other)
  Sender: FDA-Public Use
  Company Number: US-JNJCH-2010024702

PATIENT
  Sex: Male

DRUGS (1)
  1. BENADRYL [Suspect]
     Indication: SLEEP DISORDER
     Dosage: TEXT:100 TO 200 MG
     Route: 048

REACTIONS (4)
  - INTENTIONAL OVERDOSE [None]
  - MEMORY IMPAIRMENT [None]
  - OFF LABEL USE [None]
  - VISUAL IMPAIRMENT [None]
